FAERS Safety Report 5076167-1 (Version None)
Quarter: 2006Q3

REPORT INFORMATION
  Report Type: 
  Country: None (occurrence: None)
  Receive Date: 20060725
  Receipt Date: 20060418
  Transmission Date: 20061208
  Serious: No
  Sender: FDA-Public Use
  Company Number: 200610835BWH

PATIENT
  Age: 70 Year
  Sex: Female

DRUGS (15)
  1. NEXAVAR [Suspect]
     Indication: METASTASES TO SPINE
     Dosage: SEE IMAGE
     Route: 048
     Dates: start: 20060202, end: 20060214
  2. NEXAVAR [Suspect]
     Indication: RENAL CELL CARCINOMA STAGE UNSPECIFIED
     Dosage: SEE IMAGE
     Route: 048
     Dates: start: 20060202, end: 20060214
  3. NEXAVAR [Suspect]
     Indication: METASTASES TO SPINE
     Dosage: SEE IMAGE
     Route: 048
     Dates: start: 20060301
  4. NEXAVAR [Suspect]
     Indication: RENAL CELL CARCINOMA STAGE UNSPECIFIED
     Dosage: SEE IMAGE
     Route: 048
     Dates: start: 20060301
  5. GABAPENTIN [Concomitant]
  6. OXYCONTIN [Concomitant]
  7. MIRALAX [Concomitant]
  8. DULCOLAX [Concomitant]
  9. COSOPT [Concomitant]
  10. XALATAN [Concomitant]
  11. CALTRATE + D [CALCIUM CARBONATE, COLECALCIFEROL] [Concomitant]
  12. MULTI-VITAMINS [Concomitant]
  13. LASIX [Concomitant]
  14. PROTONIX [Concomitant]
  15. OXYCODONE HCL [Concomitant]

REACTIONS (12)
  - ALOPECIA [None]
  - ANOREXIA [None]
  - BODY TEMPERATURE INCREASED [None]
  - DECUBITUS ULCER [None]
  - DIZZINESS [None]
  - NASAL DISCOMFORT [None]
  - NAUSEA [None]
  - ORAL PAIN [None]
  - PAIN IN EXTREMITY [None]
  - PRURITUS [None]
  - RASH MORBILLIFORM [None]
  - VISION BLURRED [None]
